FAERS Safety Report 6662007-3 (Version None)
Quarter: 2010Q1

REPORT INFORMATION
  Report Type: 
  Country: None (occurrence: None)
  Receive Date: 20100331
  Receipt Date: 20091216
  Transmission Date: 20100710
  Serious: Yes (Other)
  Sender: FDA-Public Use
  Company Number: US-BRISTOL-MYERS SQUIBB COMPANY-14889091

PATIENT
  Age: 53 Year
  Sex: Male

DRUGS (6)
  1. ERBITUX [Suspect]
     Indication: HEAD AND NECK CANCER
     Dosage: GIVEN DURING WEEK OF 30-NOV-2009
     Dates: start: 20091116
  2. RADIATION THERAPY [Suspect]
     Indication: HEAD AND NECK CANCER
  3. STEROIDS [Concomitant]
     Indication: PREMEDICATION
     Route: 042
  4. BENADRYL [Concomitant]
     Indication: PREMEDICATION
     Route: 042
  5. TAGAMET [Concomitant]
     Indication: PREMEDICATION
  6. ALBUTEROL [Concomitant]
     Indication: PREMEDICATION
     Dosage: ALBUTEROL VIA NEBULIZER

REACTIONS (2)
  - HYPOTENSION [None]
  - LOSS OF CONSCIOUSNESS [None]
